FAERS Safety Report 9563016 (Version 1)
Quarter: 2013Q3

REPORT INFORMATION
  Report Type: Spontaneous
  Country: US (occurrence: US)
  Receive Date: 20130927
  Receipt Date: 20130927
  Transmission Date: 20140515
  Serious: No
  Sender: FDA-Public Use
  Company Number: US-009507513-1309USA005865

PATIENT
  Sex: 0

DRUGS (1)
  1. NASONEX [Suspect]
     Dosage: 4 DF, ^2 SPRAYS IN EACH NOSTRIL^, BID
     Route: 045
     Dates: start: 201209

REACTIONS (3)
  - Drug dose omission [Unknown]
  - Product container issue [Unknown]
  - No adverse event [Unknown]
